FAERS Safety Report 7057502-1 (Version None)
Quarter: 2010Q4

REPORT INFORMATION
  Report Type: 
  Country: None (occurrence: None)
  Receive Date: 20101022
  Receipt Date: 20101012
  Transmission Date: 20110411
  Serious: Yes (Hospitalization, Other)
  Sender: FDA-Public Use
  Company Number: PHHY2009CA33065

PATIENT
  Sex: Female

DRUGS (1)
  1. SANDOSTATIN LAR [Suspect]
     Indication: CARCINOID TUMOUR
     Dosage: 20 MG, EVERY 4 WEEKS
     Route: 030
     Dates: start: 20021111

REACTIONS (12)
  - ABDOMINAL PAIN UPPER [None]
  - BILIARY DILATATION [None]
  - CHOLEDOCHOLITHOTOMY [None]
  - CONSTIPATION [None]
  - DYSPNOEA [None]
  - EMBOLISM ARTERIAL [None]
  - FAECES DISCOLOURED [None]
  - JAUNDICE [None]
  - NAUSEA [None]
  - PYREXIA [None]
  - THYROID DISORDER [None]
  - VOMITING [None]
